FAERS Safety Report 17548266 (Version 1)
Quarter: 2020Q1

REPORT INFORMATION
  Report Type: Spontaneous
  Country: PT (occurrence: PT)
  Receive Date: 20200317
  Receipt Date: 20200317
  Transmission Date: 20200409
  Serious: Yes (Life-Threatening, Hospitalization, Other)
  Sender: FDA-Public Use
  Company Number: PT-AUROBINDO-AUR-APL-2020-009437

PATIENT
  Age: 49 Year
  Sex: Male

DRUGS (4)
  1. IBUPROFEN. [Suspect]
     Active Substance: IBUPROFEN
     Indication: TONSILLITIS
     Dosage: UNK
     Route: 065
  2. AMOXICILLIN+CLAVULANIC ACID [Suspect]
     Active Substance: AMOXICILLIN\CLAVULANIC ACID
     Dosage: UNK
     Route: 065
  3. AMOXICILLIN+CLAVULANIC ACID [Suspect]
     Active Substance: AMOXICILLIN\CLAVULANIC ACID
     Indication: TONSILLITIS
     Dosage: 1 DOSAGE FORM, 1 TOTAL (SINGLE DOSE)
     Route: 065
  4. DEFLAZACORTE [Suspect]
     Active Substance: DEFLAZACORT
     Indication: TONSILLITIS
     Dosage: UNK
     Route: 065

REACTIONS (7)
  - Off label use [Unknown]
  - Anaphylactic reaction [Recovered/Resolved]
  - Drug hypersensitivity [Recovered/Resolved]
  - Dyspnoea [Unknown]
  - Pruritus [Unknown]
  - Face oedema [Unknown]
  - Erythema [Unknown]
